FAERS Safety Report 9162529 (Version 1)
Quarter: 2013Q1

REPORT INFORMATION
  Report Type: Spontaneous
  Country: BR (occurrence: BR)
  Receive Date: 20130314
  Receipt Date: 20130314
  Transmission Date: 20140127
  Serious: Yes (Other)
  Sender: FDA-Public Use
  Company Number: BR-BAYER-2013-029963

PATIENT
  Sex: Female

DRUGS (1)
  1. QLAIRA [Suspect]
     Dosage: 1 DF, HS
     Route: 048

REACTIONS (2)
  - Dengue fever [None]
  - Menstruation delayed [None]
